FAERS Safety Report 4750524-2 (Version None)
Quarter: 2005Q3

REPORT INFORMATION
  Report Type: 
  Country: None (occurrence: None)
  Receive Date: 20050823
  Receipt Date: 20050607
  Transmission Date: 20060218
  Serious: Yes (Other)
  Sender: FDA-Public Use
  Company Number: US-MERCK-0506USA01439

PATIENT
  Age: 79 Year
  Sex: Male
  Weight: 85 kg

DRUGS (5)
  1. VIOXX [Suspect]
     Indication: ARTHRALGIA
     Route: 048
     Dates: start: 20020401, end: 20040901
  2. COREG [Concomitant]
     Indication: ARTHRALGIA
     Route: 065
     Dates: start: 20040101
  3. METFORMIN [Concomitant]
     Indication: DIABETES MELLITUS
     Route: 065
  4. VASOTEC RPD [Concomitant]
     Indication: HYPERTENSION
     Route: 065
     Dates: start: 19600101
  5. ASPIRIN [Concomitant]
     Indication: HYPERTENSION
     Route: 065

REACTIONS (2)
  - CAROTID ARTERY DISEASE [None]
  - MYOCARDIAL INFARCTION [None]
